FAERS Safety Report 8150508-0 (Version None)
Quarter: 2012Q1

REPORT INFORMATION
  Report Type: 
  Country: None (occurrence: None)
  Receive Date: 20120220
  Receipt Date: 20120206
  Transmission Date: 20120608
  Serious: Yes (Hospitalization)
  Sender: FDA-Public Use
  Company Number: US-UCBSA-051119

PATIENT
  Sex: Male

DRUGS (1)
  1. VIMPAT [Suspect]
     Dosage: INFUSION, UNKNOWN DOSE
     Route: 042

REACTIONS (1)
  - ARRHYTHMIA [None]
